FAERS Safety Report 8234287-4 (Version None)
Quarter: 2012Q1

REPORT INFORMATION
  Report Type: 
  Country: None (occurrence: None)
  Receive Date: 20120326
  Receipt Date: 20120315
  Transmission Date: 20120608
  Serious: Yes (Hospitalization)
  Sender: FDA-Public Use
  Company Number: US-JNJFOC-20120308546

PATIENT
  Sex: Female
  Weight: 108.41 kg

DRUGS (3)
  1. STELARA [Suspect]
     Route: 058
     Dates: start: 20120314
  2. STELARA [Suspect]
     Indication: PSORIASIS
     Route: 058
     Dates: start: 20100201
  3. STELARA [Suspect]
     Route: 058
     Dates: start: 20111221

REACTIONS (3)
  - HERNIA HIATUS REPAIR [None]
  - ENDODONTIC PROCEDURE [None]
  - CLOSTRIDIAL INFECTION [None]
